FAERS Safety Report 25498390 (Version 2)
Quarter: 2025Q3

REPORT INFORMATION
  Report Type: Spontaneous
  Country: NZ (occurrence: NZ)
  Receive Date: 20250701
  Receipt Date: 20250703
  Transmission Date: 20251020
  Serious: Yes (Death)
  Sender: MYLAN
  Company Number: NZ-MYLANLABS-2025M1030680

PATIENT
  Age: 72 Year
  Sex: Male

DRUGS (1)
  1. CLOZARIL [Suspect]
     Active Substance: CLOZAPINE
     Indication: Schizophrenia
     Dates: start: 19991123, end: 20250701

REACTIONS (5)
  - Death [Fatal]
  - Haemoglobin decreased [Unknown]
  - Red blood cell count decreased [Unknown]
  - Haematocrit decreased [Unknown]
  - Lymphocyte count decreased [Unknown]

NARRATIVE: CASE EVENT DATE: 20250404
